FAERS Safety Report 4363721-5 (Version None)
Quarter: 2004Q2

REPORT INFORMATION
  Report Type: 
  Country: None (occurrence: None)
  Receive Date: 20040521
  Receipt Date: 20040521
  Transmission Date: 20050107
  Serious: No
  Sender: FDA-Public Use
  Company Number: None

PATIENT
  Sex: Male
  Weight: 77.4 kg

DRUGS (12)
  1. ROCEPHIN [Suspect]
     Indication: WALDENSTROM'S MACROGLOBULINAEMIA
     Dosage: 1 GM EVERY 24 H INTRAVENOUS
     Route: 042
     Dates: start: 20040408, end: 20040412
  2. ZOFRAN [Concomitant]
  3. PREDNISONE [Concomitant]
  4. ADVAIR DISKUS 250/50 [Concomitant]
  5. MORPHINE CR [Concomitant]
  6. PROTONIX [Concomitant]
  7. MAALOX PLUS [Concomitant]
  8. MORPHINE SULF [Concomitant]
  9. ROBITUSSIN DM [Concomitant]
  10. MULTI-VITAMIN [Concomitant]
  11. NEURONTIN [Concomitant]
  12. SENOKOT [Concomitant]

REACTIONS (5)
  - DIARRHOEA [None]
  - DYSPNOEA EXERTIONAL [None]
  - FATIGUE [None]
  - PAIN [None]
  - RASH [None]
